FAERS Safety Report 6455165-7 (Version None)
Quarter: 2009Q4

REPORT INFORMATION
  Report Type: 
  Country: None (occurrence: None)
  Receive Date: 20091119
  Receipt Date: 20091106
  Transmission Date: 20100525
  Serious: Yes (Hospitalization)
  Sender: FDA-Public Use
  Company Number: FABR-1000559

PATIENT
  Age: 39 Year
  Sex: Male
  Weight: 71 kg

DRUGS (8)
  1. FABRAZYME [Suspect]
     Indication: FABRY'S DISEASE
     Dosage: 70 MG, Q2W, INTRAVENOUS
     Route: 042
     Dates: start: 20050101
  2. ALTACE [Concomitant]
  3. BENICAR [Concomitant]
  4. LIPITOR [Concomitant]
  5. CITRACAL (CALCIUM CITRATE) [Concomitant]
  6. COLACE (DOCUSATE SODIUM) [Concomitant]
  7. PRILOSEC [Concomitant]
  8. PREDNISONE TAB [Concomitant]

REACTIONS (2)
  - RENAL FAILURE CHRONIC [None]
  - RENAL TRANSPLANT [None]
